FAERS Safety Report 8160068-6 (Version None)
Quarter: 2012Q1

REPORT INFORMATION
  Report Type: 
  Country: None (occurrence: None)
  Receive Date: 20120223
  Receipt Date: 20120216
  Transmission Date: 20120608
  Serious: Yes (Hospitalization)
  Sender: FDA-Public Use
  Company Number: PHHO2012DE003057

PATIENT
  Age: 65 Year
  Sex: Male
  Weight: 100 kg

DRUGS (7)
  1. INSULIN [Concomitant]
     Indication: DIABETES MELLITUS
     Dosage: UNK
     Dates: start: 20050101
  2. ABACIN [Concomitant]
     Indication: LYMPHOPENIA
     Dosage: UNK
     Dates: start: 20110705, end: 20110901
  3. DEXAMETHASONE [Suspect]
     Dosage: 4 MG, QD
     Route: 048
     Dates: start: 20110729, end: 20110822
  4. DEXAMETHASONE [Suspect]
     Dosage: 2 MG, QD
     Route: 048
     Dates: start: 20110823, end: 20110825
  5. DEXAMETHASONE [Suspect]
     Indication: BRAIN OEDEMA
     Dosage: 2 MG, QD
     Route: 048
     Dates: start: 20110711, end: 20110728
  6. DEXAMETHASONE [Suspect]
     Dosage: 1 MG, QD
     Route: 048
     Dates: start: 20110826, end: 20110901
  7. TEMSIROLIMUS [Suspect]
     Indication: GLIOBLASTOMA
     Dosage: 25 MG, WEEKLY
     Route: 042
     Dates: start: 20110517, end: 20110811

REACTIONS (1)
  - STOMATITIS [None]
